FAERS Safety Report 4436995-X (Version None)
Quarter: 2004Q3

REPORT INFORMATION
  Report Type: 
  Country: None (occurrence: None)
  Receive Date: 20040726
  Receipt Date: 20040323
  Transmission Date: 20050211
  Serious: Yes (Other)
  Sender: FDA-Public Use
  Company Number: USA040362874

PATIENT
  Age: 63 Year
  Sex: Female

DRUGS (6)
  1. EVISTA [Suspect]
     Indication: OSTEOPOROSIS
     Dates: start: 20020901
  2. FORTEO [Suspect]
     Indication: OSTEOPOROSIS
  3. MIACALCIN [Concomitant]
  4. FOSAMAX [Concomitant]
  5. CALCIUM [Concomitant]
  6. VITAMIN D [Concomitant]

REACTIONS (6)
  - FEELING ABNORMAL [None]
  - FRACTURE [None]
  - FRACTURED SACRUM [None]
  - INSOMNIA [None]
  - PALPITATIONS [None]
  - PELVIC FRACTURE [None]
